FAERS Safety Report 7738063-8 (Version None)
Quarter: 2011Q3

REPORT INFORMATION
  Report Type: 
  Country: None (occurrence: None)
  Receive Date: 20110908
  Receipt Date: 20110901
  Transmission Date: 20111222
  Serious: Yes (Other)
  Sender: FDA-Public Use
  Company Number: US-ABBOTT-11P-163-0850977-00

PATIENT
  Sex: Male

DRUGS (2)
  1. HUMIRA [Suspect]
     Indication: PSORIASIS
  2. HUMIRA [Suspect]

REACTIONS (6)
  - ARTHROPATHY [None]
  - INCORRECT DOSE ADMINISTERED [None]
  - PAIN [None]
  - ABASIA [None]
  - RASH [None]
  - PSORIASIS [None]
